FAERS Safety Report 16308453 (Version 1)
Quarter: 2019Q2

REPORT INFORMATION
  Report Type: Spontaneous
  Country: US (occurrence: US)
  Receive Date: 20190514
  Receipt Date: 20190514
  Transmission Date: 20190711
  Serious: Yes (Hospitalization, Other)
  Sender: FDA-Public Use
  Company Number: US-ASTRAZENECA-2019SE70528

PATIENT
  Sex: Female

DRUGS (4)
  1. DILTIAZEM. [Concomitant]
     Active Substance: DILTIAZEM
     Indication: BLOOD PRESSURE ABNORMAL
  2. LEVETIRACETAM. [Concomitant]
     Active Substance: LEVETIRACETAM
     Indication: SEIZURE
  3. ROSUVASTATIN CALCIUM. [Suspect]
     Active Substance: ROSUVASTATIN CALCIUM
     Indication: BLOOD CHOLESTEROL INCREASED
     Route: 048
  4. DIVALPROEX [Concomitant]
     Active Substance: DIVALPROEX SODIUM
     Indication: SEIZURE

REACTIONS (15)
  - Fall [Unknown]
  - Concussion [Unknown]
  - Blood pressure increased [Not Recovered/Not Resolved]
  - Skin discolouration [Unknown]
  - Hypertension [Not Recovered/Not Resolved]
  - Balance disorder [Unknown]
  - Seizure [Recovered/Resolved]
  - Product dose omission [Unknown]
  - Influenza [Unknown]
  - Groin pain [Unknown]
  - Pyrexia [Unknown]
  - Diarrhoea [Unknown]
  - Blood potassium decreased [Unknown]
  - Weight increased [Unknown]
  - Limb discomfort [Unknown]
